FAERS Safety Report 9912170 (Version 2)
Quarter: 2014Q1

REPORT INFORMATION
  Report Type: Spontaneous
  Country: US (occurrence: US)
  Receive Date: 20140220
  Receipt Date: 20140220
  Transmission Date: 20141002
  Serious: Yes (Death, Other)
  Sender: FDA-Public Use
  Company Number: US-ROCHE-1041627

PATIENT
  Sex: Male

DRUGS (5)
  1. AVASTIN [Suspect]
     Indication: AGE-RELATED MACULAR DEGENERATION
     Dosage: 1.25 MG/0.05 ML
     Route: 065
     Dates: start: 20120125, end: 20120222
  2. LUCENTIS [Suspect]
     Indication: AGE-RELATED MACULAR DEGENERATION
     Route: 065
  3. TAMSULOSINE [Concomitant]
     Indication: BENIGN PROSTATIC HYPERPLASIA
     Route: 048
  4. LUTEIN [Concomitant]
     Indication: AGE-RELATED MACULAR DEGENERATION
     Route: 048
  5. OMEGA FISH OIL [Concomitant]
     Route: 048

REACTIONS (10)
  - Hepatic failure [Fatal]
  - Retinal oedema [Unknown]
  - Visual acuity reduced [Unknown]
  - No therapeutic response [Unknown]
  - Visual impairment [Unknown]
  - Suspected counterfeit product [Unknown]
  - Product quality issue [Unknown]
  - Pigmentation disorder [Unknown]
  - Detachment of retinal pigment epithelium [Unknown]
  - Cataract [Unknown]
